FAERS Safety Report 12422483 (Version 1)
Quarter: 2016Q2

REPORT INFORMATION
  Report Type: Spontaneous
  Country: US (occurrence: US)
  Receive Date: 20160601
  Receipt Date: 20160601
  Transmission Date: 20160815
  Serious: Yes (Other)
  Sender: FDA-Public Use
  Company Number: US-AMGEN-USASP2016067984

PATIENT

DRUGS (4)
  1. IBRANCE [Concomitant]
     Active Substance: PALBOCICLIB
  2. FEMARA [Concomitant]
     Active Substance: LETROZOLE
  3. TAMOXIFEN [Concomitant]
     Active Substance: TAMOXIFEN
  4. XGEVA [Suspect]
     Active Substance: DENOSUMAB
     Indication: PRODUCT USED FOR UNKNOWN INDICATION
     Dosage: Q4WK
     Route: 065

REACTIONS (4)
  - Disease progression [Unknown]
  - Rib fracture [Unknown]
  - Metastases to bone [Unknown]
  - Metastases to spine [Unknown]
